FAERS Safety Report 7986407-4 (Version None)
Quarter: 2011Q4

REPORT INFORMATION
  Report Type: 
  Country: None (occurrence: None)
  Receive Date: 20111216
  Receipt Date: 20110930
  Transmission Date: 20120403
  Serious: No
  Sender: FDA-Public Use
  Company Number: US-GLAXOSMITHKLINE-A0946616A

PATIENT
  Sex: Female

DRUGS (5)
  1. WARFARIN SODIUM [Concomitant]
  2. COREG CR [Suspect]
     Indication: CARDIAC FAILURE
     Dosage: 40MG PER DAY
     Route: 048
     Dates: start: 20110501
  3. FUROSEMIDE [Concomitant]
  4. DIPYRIDAMOLE [Concomitant]
  5. LOSARTAN POTASSIUM [Concomitant]

REACTIONS (1)
  - MUSCULAR WEAKNESS [None]
